FAERS Safety Report 8400372-7 (Version None)
Quarter: 2012Q2

REPORT INFORMATION
  Report Type: 
  Country: None (occurrence: None)
  Receive Date: 20120531
  Receipt Date: 20120529
  Transmission Date: 20120825
  Serious: Yes (Death, Hospitalization, Other)
  Sender: FDA-Public Use
  Company Number: US-ACTELION-A-US2012-60214

PATIENT

DRUGS (8)
  1. TRACLEER [Suspect]
     Indication: PULMONARY ARTERIAL HYPERTENSION
     Dosage: 125 MG, BID
     Route: 048
     Dates: start: 20080101, end: 20120124
  2. TRACLEER [Suspect]
     Dosage: 62.5 MG, BID
     Route: 048
     Dates: start: 20030317, end: 20080101
  3. CALCIUM CHANNEL BLOCKERS [Concomitant]
  4. TRACLEER [Suspect]
     Dosage: 62.5 MG, BID
     Route: 048
     Dates: start: 20120125
  5. OXYGEN [Concomitant]
  6. COUMADIN [Concomitant]
  7. SUDAFED 12 HOUR [Concomitant]
  8. ASPIRIN [Concomitant]

REACTIONS (11)
  - DYSPNOEA [None]
  - DIZZINESS [None]
  - THROMBOSIS [None]
  - VIRAL INFECTION [None]
  - MALAISE [None]
  - SHOULDER ARTHROPLASTY [None]
  - FLUID RETENTION [None]
  - DEATH [None]
  - HERPES ZOSTER [None]
  - CARDIAC FAILURE CONGESTIVE [None]
  - ELBOW OPERATION [None]
